FAERS Safety Report 10047752 (Version 1)
Quarter: 2014Q1

REPORT INFORMATION
  Report Type: Spontaneous
  Country: US (occurrence: None)
  Receive Date: 20140327
  Receipt Date: 20140327
  Transmission Date: 20141002
  Serious: Yes (Death)
  Sender: FDA-Public Use
  Company Number: UTC-046185

PATIENT
  Age: 64 Day
  Sex: Female

DRUGS (2)
  1. REMODULIN [Suspect]
     Indication: PULMONARY ARTERIAL HYPERTENSION
     Dosage: 69.12UG/KG (0.048 UG/KG, 1 IN 1 MIN) INTRAVENOUS DRIP
     Route: 041
     Dates: start: 20130516, end: 20140306
  2. TRACLEER (BOSENTAN) [Concomitant]

REACTIONS (3)
  - Pulmonary arterial hypertension [None]
  - Scleroderma [None]
  - Disease recurrence [None]
